FAERS Safety Report 9643814 (Version 1)
Quarter: 2013Q4

REPORT INFORMATION
  Report Type: Report from Study
  Country: BR (occurrence: BR)
  Receive Date: 20131024
  Receipt Date: 20131024
  Transmission Date: 20140711
  Serious: Yes (Other)
  Sender: FDA-Public Use
  Company Number: PHHY2013BR120127

PATIENT
  Sex: Female
  Weight: 69 kg

DRUGS (6)
  1. ACLASTA [Suspect]
     Indication: OSTEOPOROSIS
     Dosage: 5 MG, UNK
     Route: 042
     Dates: start: 2011
  2. CALCIUM + VITAMIN D [Concomitant]
     Indication: VITAMIN SUPPLEMENTATION
     Dosage: 1 UKN, DAILY
     Route: 048
     Dates: start: 2011
  3. MIOCALVEN D [Concomitant]
     Indication: VITAMIN SUPPLEMENTATION
     Dosage: 2 DF, DAILY
     Route: 048
     Dates: start: 2011
  4. CITONEURIN                         /00176001/ [Concomitant]
     Indication: VITAMIN SUPPLEMENTATION
     Dosage: 1 OR 2 TIMES EVERY MONTH
     Route: 042
     Dates: start: 2010
  5. ADDERA D3 [Concomitant]
     Dosage: 8 DRP, DAILY
     Route: 048
     Dates: start: 2011
  6. CENTRUM [Concomitant]
     Dosage: UNK DF, UNK

REACTIONS (4)
  - Tendon rupture [Recovered/Resolved]
  - Bone fissure [Unknown]
  - Osteoporosis [Unknown]
  - Disease progression [Unknown]
